FAERS Safety Report 22305625 (Version 2)
Quarter: 2023Q2

REPORT INFORMATION
  Report Type: Report from Study
  Country: US (occurrence: US)
  Receive Date: 20230510
  Receipt Date: 20230522
  Transmission Date: 20230722
  Serious: Yes (Other)
  Sender: FDA-Public Use
  Company Number: US-GILEAD-2023-0624960

PATIENT
  Sex: Female

DRUGS (1)
  1. SACITUZUMAB GOVITECAN-HZIY [Suspect]
     Active Substance: SACITUZUMAB GOVITECAN-HZIY
     Indication: Breast cancer
     Dosage: 826 MG
     Route: 042
     Dates: start: 20230106

REACTIONS (17)
  - Ovarian vein thrombosis [Unknown]
  - Nausea [Unknown]
  - Chest discomfort [Unknown]
  - Back pain [Unknown]
  - Hypersomnia [Unknown]
  - Diarrhoea [Recovered/Resolved]
  - Weight decreased [Unknown]
  - Pruritus [Not Recovered/Not Resolved]
  - Skin hyperpigmentation [Not Recovered/Not Resolved]
  - Pain [Not Recovered/Not Resolved]
  - Headache [Unknown]
  - Diarrhoea [Recovering/Resolving]
  - Blood pressure abnormal [Not Recovered/Not Resolved]
  - Abdominal pain upper [Unknown]
  - Back pain [Unknown]
  - Gastric disorder [Not Recovered/Not Resolved]
  - Diarrhoea [Not Recovered/Not Resolved]
